FAERS Safety Report 7364941-8 (Version None)
Quarter: 2011Q1

REPORT INFORMATION
  Report Type: 
  Country: None (occurrence: None)
  Receive Date: 20110321
  Receipt Date: 20110222
  Transmission Date: 20110831
  Serious: No
  Sender: FDA-Public Use
  Company Number: US-B.I. PHARMACEUTICALS,INC./RIDGEFIELD-2011-BP-06590BP

PATIENT
  Sex: Male

DRUGS (6)
  1. INSULIN [Concomitant]
     Indication: DIABETES MELLITUS
  2. PROPAFENONE [Concomitant]
     Indication: HYPERTENSION
  3. METOPROLOL SUCCINATE [Concomitant]
     Indication: HYPERTENSION
  4. M.V.I. [Concomitant]
  5. PERSANTINE [Suspect]
     Indication: ATRIAL FIBRILLATION
     Dosage: 300 MG
     Route: 048
     Dates: start: 20101209
  6. CALCIUM [Concomitant]

REACTIONS (1)
  - PRURITUS GENERALISED [None]
